FAERS Safety Report 12526936 (Version 2)
Quarter: 2016Q4

REPORT INFORMATION
  Report Type: Spontaneous
  Country: US (occurrence: US)
  Receive Date: 20160705
  Receipt Date: 20161110
  Transmission Date: 20170207
  Serious: No
  Sender: FDA-Public Use
  Company Number: US-GLAXOSMITHKLINE-US2016088971

PATIENT
  Sex: Male

DRUGS (11)
  1. VITAMIN D [Concomitant]
     Active Substance: CHOLECALCIFEROL
  2. CRESTOR [Concomitant]
     Active Substance: ROSUVASTATIN CALCIUM
  3. LOVAZA [Concomitant]
     Active Substance: OMEGA-3-ACID ETHYL ESTERS
  4. COQ10 [Concomitant]
     Active Substance: UBIDECARENONE
  5. GLUCOTROL [Concomitant]
     Active Substance: GLIPIZIDE
  6. ACIPHEX [Concomitant]
     Active Substance: RABEPRAZOLE SODIUM
  7. ALPRAZOLAM. [Concomitant]
     Active Substance: ALPRAZOLAM
  8. REQUIP [Concomitant]
     Active Substance: ROPINIROLE HYDROCHLORIDE
     Dosage: UNK
  9. TANZEUM [Suspect]
     Active Substance: ALBIGLUTIDE
     Indication: PRODUCT USED FOR UNKNOWN INDICATION
     Dosage: 30 MG, WE
     Dates: start: 20160609, end: 20160623
  10. WELLBUTRIN XL [Concomitant]
     Active Substance: BUPROPION HYDROCHLORIDE
  11. ZESTRIL [Concomitant]
     Active Substance: LISINOPRIL

REACTIONS (4)
  - Blood glucose abnormal [Not Recovered/Not Resolved]
  - Device use error [Unknown]
  - Wrong technique in product usage process [Unknown]
  - Drug ineffective [Not Recovered/Not Resolved]
